FAERS Safety Report 7114165-4 (Version None)
Quarter: 2010Q4

REPORT INFORMATION
  Report Type: 
  Country: None (occurrence: None)
  Receive Date: 20101119
  Receipt Date: 20101116
  Transmission Date: 20110411
  Serious: Yes (Other)
  Sender: FDA-Public Use
  Company Number: BR-PFIZER INC-2008031799

PATIENT
  Age: 69 Year
  Sex: Female
  Weight: 62 kg

DRUGS (23)
  1. CHAMPIX [Suspect]
     Indication: SMOKING CESSATION THERAPY
     Dosage: 1 MG, 2X/DAY
     Route: 048
     Dates: start: 20071101, end: 20080101
  2. CHAMPIX [Suspect]
     Dosage: UNK
     Route: 048
     Dates: start: 20100812, end: 20100917
  3. CHAMPIX [Suspect]
     Dosage: 0.5 MG, 2X/DAY
     Route: 048
     Dates: end: 20100917
  4. CHAMPIX [Suspect]
     Dosage: 0.5 MG, 1X/DAY (EVERY 24 HOURS)
     Route: 048
  5. BUPROPION [Suspect]
     Dosage: 150 MG, 1X/DAY
     Dates: end: 20100810
  6. RIVOTRIL [Concomitant]
     Indication: ANXIETY
     Dosage: 0.5 MG
     Dates: start: 20010101
  7. RIVOTRIL [Concomitant]
     Indication: DEPRESSION
  8. TRANQUINAL [Concomitant]
     Indication: DEPRESSION
     Dosage: 0.5 MG, 2X/DAY
     Dates: start: 20010101
  9. TRANQUINAL [Concomitant]
     Indication: ANXIETY
  10. EQUILID [Concomitant]
     Indication: ANXIETY
     Dosage: 50 MG, 2X/DAY
     Dates: start: 20010101
  11. EQUILID [Concomitant]
     Indication: DEPRESSION
  12. LEXOTAN [Concomitant]
     Indication: MUSCLE RELAXANT THERAPY
  13. LEXOTAN [Concomitant]
     Indication: ANXIETY
  14. ENALAPRIL [Concomitant]
     Indication: HYPERTENSION
     Dosage: 0.5 MG, 1X/DAY
     Dates: start: 20010101
  15. OMEPRAZOLE [Concomitant]
     Indication: GASTRITIS
     Dosage: 20 MG, 1X/DAY
  16. FORMOTEROL W/BUDESONIDE [Concomitant]
     Dosage: [FORMOTEROL FUMARATE 12MG]/[BUDESONIDE 400MG]
  17. PREDNISOLONE [Concomitant]
     Dosage: 20 ML, 1X/DAY
  18. DUOVENT [Concomitant]
  19. PURAN T4 [Concomitant]
     Indication: HYPOTHYROIDISM
     Dosage: UNK
     Dates: start: 20100801
  20. PAROXETINE HYDROCHLORIDE [Concomitant]
     Indication: DEPRESSION
     Dosage: 15 MG, 1X/DAY, AT LUNCH
     Dates: start: 20010101
  21. SINVALIP [Concomitant]
     Indication: BLOOD CHOLESTEROL INCREASED
     Dosage: 20 MG, 1X/DAY
     Dates: start: 20010101
  22. PLANTABEN [Concomitant]
     Indication: DIVERTICULITIS
     Dosage: UNK
     Dates: start: 20100301
  23. PONDERA [Concomitant]
     Dosage: 15 MG, 1X/DAY

REACTIONS (33)
  - ABDOMINAL DISTENSION [None]
  - ABDOMINAL PAIN UPPER [None]
  - ANXIETY [None]
  - CONDITION AGGRAVATED [None]
  - CONSTIPATION [None]
  - DECREASED APPETITE [None]
  - DEPRESSION [None]
  - DIZZINESS [None]
  - DRY MOUTH [None]
  - DYSPEPSIA [None]
  - DYSPNOEA [None]
  - EMPHYSEMA [None]
  - ERYTHEMA [None]
  - EYE PAIN [None]
  - FACIAL ASYMMETRY [None]
  - FATIGUE [None]
  - FEAR [None]
  - FEELING ABNORMAL [None]
  - GASTRITIS [None]
  - GENERALISED OEDEMA [None]
  - HEADACHE [None]
  - INTESTINAL FUNCTIONAL DISORDER [None]
  - LACTOSE INTOLERANCE [None]
  - NAUSEA [None]
  - PAIN [None]
  - PAIN IN EXTREMITY [None]
  - PANIC DISORDER [None]
  - RETCHING [None]
  - SWELLING [None]
  - THROAT TIGHTNESS [None]
  - TRACHEAL OBSTRUCTION [None]
  - TREMOR [None]
  - WEIGHT DECREASED [None]
